FAERS Safety Report 6589930-2 (Version None)
Quarter: 2010Q1

REPORT INFORMATION
  Report Type: 
  Country: None (occurrence: None)
  Receive Date: 20100205
  Receipt Date: 20100126
  Transmission Date: 20100710
  Serious: Yes (Other)
  Sender: FDA-Public Use
  Company Number: 005525

PATIENT
  Sex: Female

DRUGS (1)
  1. KEPPRA [Suspect]
     Indication: DRUG USE FOR UNKNOWN INDICATION
     Dosage: 500 MG BID, ORAL
     Route: 048

REACTIONS (3)
  - CAESAREAN SECTION [None]
  - MATERNAL DRUGS AFFECTING FOETUS [None]
  - ULTRASOUND SCAN ABNORMAL [None]
